FAERS Safety Report 23391541 (Version 2)
Quarter: 2024Q2

REPORT INFORMATION
  Report Type: Spontaneous
  Country: AU (occurrence: AU)
  Receive Date: 20240111
  Receipt Date: 20240419
  Transmission Date: 20240716
  Serious: Yes (Hospitalization)
  Sender: FDA-Public Use
  Company Number: AU-MYLANLABS-2024M1002917

PATIENT
  Sex: Male

DRUGS (2)
  1. CLOZARIL [Suspect]
     Active Substance: CLOZAPINE
     Indication: Schizophrenia
     Dosage: 300 MILLIGRAM
     Route: 048
     Dates: start: 20230317
  2. CLOZARIL [Suspect]
     Active Substance: CLOZAPINE
     Dosage: UNK (REDUCED DOSE)
     Route: 048

REACTIONS (2)
  - Mental disorder [Not Recovered/Not Resolved]
  - COVID-19 [Unknown]
